FAERS Safety Report 4462431-3 (Version None)
Quarter: 2004Q3

REPORT INFORMATION
  Report Type: 
  Country: None (occurrence: None)
  Receive Date: 20040924
  Receipt Date: 20040910
  Transmission Date: 20050211
  Serious: Yes (Death)
  Sender: FDA-Public Use
  Company Number: F01200300786

PATIENT
  Age: 75 Year
  Sex: Male

DRUGS (13)
  1. (OXALIPLATIN) - SOLUTION - 130 MG/M2 [Suspect]
     Indication: COLORECTAL CANCER
     Dosage: 244 MG Q3W INTRAVENOUS NOS
     Route: 042
     Dates: start: 20030718, end: 20030718
  2. (CAPECITABINE) - TABLET - 1000 MG/M2 [Suspect]
     Dosage: Q3W , ORAL
     Route: 048
     Dates: start: 20030718, end: 20030730
  3. DEXAMETHASONE [Concomitant]
  4. ONDANSETRON [Concomitant]
  5. LOPERAMIDE HCL [Concomitant]
  6. ASPIRIN [Concomitant]
  7. DIGOXIN [Concomitant]
  8. DOCUSATE SODIUM [Concomitant]
  9. FUROSEMIDE [Concomitant]
  10. HYDROXYZINE [Concomitant]
  11. RABEPRAZOLE SODIUM [Concomitant]
  12. SENNOSIDE (SENNA) [Interacting]
  13. SPIRONOLACTONE [Concomitant]

REACTIONS (31)
  - ABDOMINAL DISCOMFORT [None]
  - AORTIC ATHEROSCLEROSIS [None]
  - ATHEROSCLEROSIS [None]
  - CARDIAC ARREST [None]
  - CARDIOMEGALY [None]
  - CARDIOTOXICITY [None]
  - CEREBRAL ATHEROSCLEROSIS [None]
  - CORONARY ARTERY DISEASE [None]
  - CORONARY ARTERY STENOSIS [None]
  - CORONARY ARTERY THROMBOSIS [None]
  - DEHYDRATION [None]
  - DIARRHOEA [None]
  - ELECTROMECHANICAL DISSOCIATION [None]
  - FOCAL NODULAR HYPERPLASIA [None]
  - HAEMOGLOBIN DECREASED [None]
  - HEPATIC LESION [None]
  - LEFT VENTRICULAR FAILURE [None]
  - MEDICAL DEVICE PAIN [None]
  - MYOCARDIAL INFARCTION [None]
  - MYOCARDIAL ISCHAEMIA [None]
  - NAUSEA [None]
  - NEPHROSCLEROSIS [None]
  - ORAL PAIN [None]
  - PLATELET COUNT DECREASED [None]
  - RESPIRATORY ARREST [None]
  - SCAR [None]
  - STOMATITIS [None]
  - SUDDEN DEATH [None]
  - TRICUSPID VALVE INCOMPETENCE [None]
  - VENTRICULAR FIBRILLATION [None]
  - VOMITING [None]
